FAERS Safety Report 5515415-8 (Version None)
Quarter: 2007Q4

REPORT INFORMATION
  Report Type: 
  Country: None (occurrence: None)
  Receive Date: 20071113
  Receipt Date: 20070212
  Transmission Date: 20080405
  Serious: No
  Sender: FDA-Public Use
  Company Number: A0639205A

PATIENT
  Age: 48 Year
  Sex: Male

DRUGS (5)
  1. COREG [Suspect]
     Dosage: 3.125MG TWICE PER DAY
     Route: 048
     Dates: start: 20060801
  2. COUMADIN [Concomitant]
  3. LISINOPRIL [Concomitant]
  4. DIGITEK [Concomitant]
  5. LASIX [Concomitant]

REACTIONS (4)
  - AMNESIA [None]
  - COGNITIVE DISORDER [None]
  - HYPOTENSION [None]
  - WEIGHT INCREASED [None]
